FAERS Safety Report 14633876 (Version 1)
Quarter: 2018Q1

REPORT INFORMATION
  Report Type: Spontaneous
  Country: DE (occurrence: DE)
  Receive Date: 20180314
  Receipt Date: 20180314
  Transmission Date: 20180509
  Serious: Yes (Hospitalization, Other)
  Sender: FDA-Public Use
  Company Number: DE-CIPLA LTD.-2018DE11175

PATIENT

DRUGS (33)
  1. BISOPROLOL FUMARATE. [Concomitant]
     Active Substance: BISOPROLOL FUMARATE
     Indication: CARDIAC FAILURE CONGESTIVE
     Dosage: 1.25 MG, DAILY
     Route: 048
     Dates: start: 20161102
  2. ELIQUIS [Concomitant]
     Active Substance: APIXABAN
     Indication: ATRIAL FIBRILLATION
     Dosage: 1 DF, UNK
     Route: 065
  3. CARVEDILOL. [Concomitant]
     Active Substance: CARVEDILOL
     Dosage: 37.5 MG, DAILY
     Route: 048
  4. ALDACTONE [Concomitant]
     Active Substance: SPIRONOLACTONE
     Indication: CARDIAC FAILURE
     Dosage: 1 DF, DAILY
     Route: 065
  5. CARVEDILOL. [Concomitant]
     Active Substance: CARVEDILOL
     Dosage: 25 MG, DAILY
     Route: 048
     Dates: start: 20161024, end: 20161101
  6. CARVEDILOL. [Concomitant]
     Active Substance: CARVEDILOL
     Dosage: 25 MG, DAILY
     Route: 048
     Dates: end: 20161023
  7. FURORESE                           /00032602/ [Concomitant]
     Indication: PRODUCT USED FOR UNKNOWN INDICATION
     Dosage: 2 DF, DAILY
     Route: 065
  8. AMIODARONE [Suspect]
     Active Substance: AMIODARONE
     Indication: PRODUCT USED FOR UNKNOWN INDICATION
     Dosage: UNK
     Route: 065
  9. ENTRESTO [Suspect]
     Active Substance: SACUBITRIL\VALSARTAN
     Dosage: 200 MG, DAILY
     Route: 048
     Dates: start: 20160727
  10. CARVEDILOL. [Concomitant]
     Active Substance: CARVEDILOL
     Indication: CARDIAC FAILURE CHRONIC
     Dosage: 25 MG, DAILY
     Route: 048
     Dates: start: 20170111, end: 20170321
  11. CARVEDILOL. [Concomitant]
     Active Substance: CARVEDILOL
     Dosage: 12.5 MG, DAILY
     Route: 048
     Dates: end: 20161023
  12. SPIRONOLACTONE. [Concomitant]
     Active Substance: SPIRONOLACTONE
     Indication: CARDIAC FAILURE
     Dosage: 25 MG, DAILY
     Route: 048
     Dates: start: 20161002
  13. TORASEMID HEXAL [Concomitant]
     Indication: CARDIAC FAILURE
     Dosage: 2 DF, UNK
     Route: 065
     Dates: start: 20161018, end: 20161027
  14. TORASEMIDE [Concomitant]
     Active Substance: TORSEMIDE
     Dosage: 20 MG, DAILY
     Route: 048
     Dates: start: 20161018
  15. AMLODIPIN HEXAL                    /00972401/ [Concomitant]
     Active Substance: AMLODIPINE BESYLATE
     Indication: HYPERTENSION
     Dosage: 1 DF, DAILY
     Route: 065
  16. ENTRESTO [Suspect]
     Active Substance: SACUBITRIL\VALSARTAN
     Dosage: 200 MG, DAILY
     Route: 048
     Dates: start: 20161002
  17. CARVEDILOL. [Concomitant]
     Active Substance: CARVEDILOL
     Dosage: 12.5 MG, DAILY
     Route: 048
     Dates: start: 20170323
  18. CARVEDILOL. [Suspect]
     Active Substance: CARVEDILOL
     Indication: CARDIAC FAILURE
     Dosage: 1.5 DF, DAILY
     Route: 048
     Dates: start: 20160101, end: 20161018
  19. ENTRESTO [Suspect]
     Active Substance: SACUBITRIL\VALSARTAN
     Dosage: 400 MG, DAILY
     Route: 048
     Dates: start: 20160504, end: 20160726
  20. TORASEMIDE [Concomitant]
     Active Substance: TORSEMIDE
     Indication: CARDIAC FAILURE CHRONIC
     Dosage: 10 MG, DAILY
     Route: 048
     Dates: start: 20170411
  21. TORASEMIDE [Concomitant]
     Active Substance: TORSEMIDE
     Dosage: 10 MG, DAILY
     Route: 048
     Dates: start: 20161017, end: 20161017
  22. AMLODIPIN HEXAL                    /00972401/ [Concomitant]
     Active Substance: AMLODIPINE BESYLATE
     Dosage: 5 MG, DAILY
     Route: 048
  23. URAPIDIL [Concomitant]
     Active Substance: URAPIDIL
     Indication: PULMONARY OEDEMA
     Dosage: 10 MG, DAILY
     Route: 042
     Dates: start: 20161215, end: 20161215
  24. ALLOPURINOL HEXAL [Concomitant]
     Active Substance: ALLOPURINOL
     Indication: PRODUCT USED FOR UNKNOWN INDICATION
     Dosage: UNK
     Route: 065
  25. ASPIRIN. [Concomitant]
     Active Substance: ASPIRIN
     Indication: CORONARY ARTERY DISEASE
     Dosage: 1 DF, DAILY
     Route: 065
  26. CARVEDILOL. [Suspect]
     Active Substance: CARVEDILOL
     Dosage: 1 DF, DAILY
     Route: 048
     Dates: start: 20161019, end: 20161101
  27. SIMVASTATIN - 1 A PHARMA [Concomitant]
     Indication: CORONARY ARTERY DISEASE
     Dosage: 1 DF, DAILY
     Route: 065
  28. TORASEMIDE [Concomitant]
     Active Substance: TORSEMIDE
     Dosage: 20 MG, DAILY
     Route: 048
     Dates: start: 20161002
  29. BISOPROLOL RATIOPHARM [Concomitant]
     Active Substance: BISOPROLOL
     Indication: PRODUCT USED FOR UNKNOWN INDICATION
     Dosage: 0.5 DF, DAILY
     Route: 065
  30. ENTRESTO [Suspect]
     Active Substance: SACUBITRIL\VALSARTAN
     Indication: CARDIAC FAILURE CHRONIC
     Dosage: 100 MG, DAILY
     Route: 048
     Dates: start: 20160311, end: 20160503
  31. SPIRIVA [Concomitant]
     Active Substance: TIOTROPIUM BROMIDE MONOHYDRATE
     Indication: CHRONIC OBSTRUCTIVE PULMONARY DISEASE
     Dosage: 1 DF, DAILY
     Route: 065
     Dates: start: 20161018
  32. TORASEMIDE [Concomitant]
     Active Substance: TORSEMIDE
     Dosage: 15 MG, DAILY
     Route: 048
     Dates: start: 20161014, end: 20161014
  33. SALBUTAMOL-RATIOPHARM N [Concomitant]
     Indication: CHRONIC OBSTRUCTIVE PULMONARY DISEASE
     Dosage: 2 DF, DAILY
     Route: 055
     Dates: start: 20161014

REACTIONS (23)
  - Hypokalaemia [Not Recovered/Not Resolved]
  - Pleural effusion [Unknown]
  - Cardiac failure [Recovered/Resolved]
  - Acute kidney injury [Not Recovered/Not Resolved]
  - Pulmonary oedema [Recovered/Resolved]
  - Electrocardiogram QT prolonged [Recovered/Resolved]
  - Sinus bradycardia [Recovered/Resolved]
  - Tachypnoea [Unknown]
  - Hypotension [Unknown]
  - Hypothyroidism [Recovering/Resolving]
  - Blood potassium decreased [Recovered/Resolved]
  - Dizziness [Not Recovered/Not Resolved]
  - Oedema peripheral [Not Recovered/Not Resolved]
  - Pericardial effusion [Unknown]
  - Dyspnoea [Unknown]
  - Benign prostatic hyperplasia [Not Recovered/Not Resolved]
  - Blood creatinine increased [Unknown]
  - Respiratory failure [Recovered/Resolved]
  - Blood pressure increased [Unknown]
  - White blood cell count increased [Not Recovered/Not Resolved]
  - Wheezing [Unknown]
  - Urinary tract infection [Recovering/Resolving]
  - Atelectasis [Unknown]

NARRATIVE: CASE EVENT DATE: 20161018
